FAERS Safety Report 13540253 (Version 2)
Quarter: 2017Q2

REPORT INFORMATION
  Report Type: Spontaneous
  Country: TR (occurrence: TR)
  Receive Date: 20170512
  Receipt Date: 20170522
  Transmission Date: 20170830
  Serious: Yes (Hospitalization, Other)
  Sender: FDA-Public Use
  Company Number: TR-PFIZER INC-2017197417

PATIENT
  Age: 43 Year
  Sex: Female

DRUGS (3)
  1. METHOTREXATE SODIUM. [Suspect]
     Active Substance: METHOTREXATE SODIUM
     Indication: BENIGN HYDATIDIFORM MOLE
     Dosage: 75 MG, ON DAYS 1, 3, 5, AND 7
  2. FOLINIC ACID [Concomitant]
     Active Substance: LEUCOVORIN
     Indication: GESTATIONAL TROPHOBLASTIC TUMOUR
     Dosage: 60 MG, (1 MG/KG) ON DAYS 2, 4, 6, AND 8
  3. METHOTREXATE SODIUM. [Suspect]
     Active Substance: METHOTREXATE SODIUM
     Indication: GESTATIONAL TROPHOBLASTIC TUMOUR

REACTIONS (6)
  - Candida infection [Unknown]
  - Stomatitis [Recovered/Resolved]
  - Gastrointestinal toxicity [Recovered/Resolved]
  - Skin toxicity [Recovered/Resolved]
  - Nausea [Recovered/Resolved]
  - Fungal skin infection [Unknown]
